FAERS Safety Report 7526930-X (Version None)
Quarter: 2011Q2

REPORT INFORMATION
  Report Type: 
  Country: None (occurrence: None)
  Receive Date: 20110606
  Receipt Date: 20040713
  Transmission Date: 20111010
  Serious: Yes (Other)
  Sender: FDA-Public Use
  Company Number: PHFR2004GB02703

PATIENT
  Sex: Male

DRUGS (2)
  1. CLOZAPINE [Suspect]
     Indication: SCHIZOPHRENIA
     Dosage: 300 MG, QD
     Route: 048
     Dates: start: 20040614
  2. FORTISIP [Concomitant]
     Route: 065

REACTIONS (4)
  - DIARRHOEA [None]
  - CLOSTRIDIAL INFECTION [None]
  - DYSPNOEA [None]
  - WHITE BLOOD CELL COUNT INCREASED [None]
